FAERS Safety Report 8578554-3 (Version None)
Quarter: 2012Q3

REPORT INFORMATION
  Report Type: 
  Country: None (occurrence: None)
  Receive Date: 20120808
  Receipt Date: 20120731
  Transmission Date: 20120928
  Serious: No
  Sender: FDA-Public Use
  Company Number: US-BAYER-2012-064295

PATIENT
  Age: 37 Year
  Sex: Female
  Weight: 65.306 kg

DRUGS (3)
  1. MULTI-VITAMIN [Concomitant]
     Dosage: UNK UNK, PRN
  2. IBUPROFEN [Concomitant]
     Dosage: 20 MG, PRN
  3. MIRENA [Suspect]
     Indication: MENSTRUATION IRREGULAR
     Dosage: 20 ?G/D, UNK
     Route: 015
     Dates: start: 20120524

REACTIONS (1)
  - DEVICE EXPULSION [None]
